FAERS Safety Report 12689948 (Version 1)
Quarter: 2016Q3

REPORT INFORMATION
  Report Type: Spontaneous
  Country: DE (occurrence: DE)
  Receive Date: 20160826
  Receipt Date: 20160826
  Transmission Date: 20161109
  Serious: Yes (Congenital Anomaly, Other)
  Sender: FDA-Public Use
  Company Number: DE-PFIZER INC-2016395080

PATIENT
  Sex: Male
  Weight: 3.7 kg

DRUGS (5)
  1. DIAZEPAM. [Suspect]
     Active Substance: DIAZEPAM
     Dosage: 2 MG, 3X/DAY, WEEK 37+2 UNTIL DELIVERY
     Route: 064
     Dates: start: 201606, end: 20160627
  2. FEMIBION [Concomitant]
     Active Substance: VITAMINS
     Indication: PROPHYLAXIS OF NEURAL TUBE DEFECT
     Dosage: UNK (1.5. - 38.2. GESTATIONAL WEEK)
     Route: 064
     Dates: start: 20151015, end: 20160627
  3. DIAZEPAM. [Suspect]
     Active Substance: DIAZEPAM
     Dosage: 8 MG, DAILY
     Route: 064
     Dates: start: 20160428, end: 20160526
  4. SERTRALINE HCL [Suspect]
     Active Substance: SERTRALINE HYDROCHLORIDE
     Indication: DEPRESSION
     Dosage: 100 MG, DAILY, 0. - 38.2. GESTATIONAL WEEK
     Route: 064
     Dates: start: 20151003, end: 20160627
  5. DIAZEPAM. [Suspect]
     Active Substance: DIAZEPAM
     Indication: DEPRESSION
     Dosage: UNK
     Route: 064
     Dates: start: 20151003

REACTIONS (9)
  - Respiratory disorder neonatal [Recovered/Resolved]
  - Hypertonia [Recovered/Resolved]
  - Diarrhoea [Recovered/Resolved]
  - Maternal exposure during pregnancy [Unknown]
  - Drug withdrawal syndrome neonatal [Recovered/Resolved]
  - Atrial septal defect [Unknown]
  - Myoclonus [Recovered/Resolved]
  - Sneezing [Recovered/Resolved]
  - Vomiting [Recovered/Resolved]

NARRATIVE: CASE EVENT DATE: 20160627
